FAERS Safety Report 21626715 (Version 2)
Quarter: 2023Q1

REPORT INFORMATION
  Report Type: Report from Study
  Country: US (occurrence: US)
  Receive Date: 20221122
  Receipt Date: 20230313
  Transmission Date: 20230418
  Serious: Yes (Hospitalization, Other)
  Sender: FDA-Public Use
  Company Number: US-ABBVIE-4208401

PATIENT
  Age: 67 Year
  Sex: Male

DRUGS (2)
  1. HUMIRA [Suspect]
     Active Substance: ADALIMUMAB
     Indication: Ankylosing spondylitis
     Route: 058
     Dates: start: 20150220
  2. HUMIRA [Suspect]
     Active Substance: ADALIMUMAB
     Route: 058

REACTIONS (11)
  - Wrist surgery [Recovered/Resolved]
  - Fall [Recovering/Resolving]
  - Cardiac failure congestive [Unknown]
  - Neck surgery [Recovered/Resolved]
  - COVID-19 [Recovered/Resolved with Sequelae]
  - Osteoarthritis [Unknown]
  - Renal function test abnormal [Unknown]
  - Ankle operation [Recovered/Resolved]
  - Arthropathy [Unknown]
  - Blood glucose increased [Recovering/Resolving]
  - Oxygen saturation decreased [Unknown]

NARRATIVE: CASE EVENT DATE: 20180210
